FAERS Safety Report 5777266-9 (Version None)
Quarter: 2008Q2

REPORT INFORMATION
  Report Type: 
  Country: None (occurrence: None)
  Receive Date: 20080618
  Receipt Date: 20080609
  Transmission Date: 20081010
  Serious: Yes (Other)
  Sender: FDA-Public Use
  Company Number: US-ELI_LILLY_AND_COMPANY-US200806001970

PATIENT
  Sex: Female

DRUGS (4)
  1. FORTEO [Suspect]
     Dosage: UNK, UNK
     Dates: start: 20080201, end: 20080101
  2. VYTORIN [Concomitant]
     Indication: BLOOD CHOLESTEROL INCREASED
     Dosage: 10 OR 20 MG
  3. THYROID THERAPY [Concomitant]
     Indication: ILL-DEFINED DISORDER
  4. AMBIEN [Concomitant]
     Indication: INSOMNIA

REACTIONS (4)
  - BLOOD PRESSURE DIASTOLIC INCREASED [None]
  - DIZZINESS [None]
  - FLUSHING [None]
  - MUSCLE SPASMS [None]
